FAERS Safety Report 4459074-4 (Version None)
Quarter: 2004Q3

REPORT INFORMATION
  Report Type: 
  Country: None (occurrence: None)
  Receive Date: 20040920
  Receipt Date: 20040920
  Transmission Date: 20050211
  Serious: Yes (Life-Threatening)
  Sender: FDA-Public Use
  Company Number: None

PATIENT
  Age: 25 Year
  Sex: Female
  Weight: 108.5 kg

DRUGS (10)
  1. LINEZOLID [Suspect]
     Indication: FEBRILE NEUTROPENIA
     Dosage: 600 MG Q 12 H PO
     Route: 048
  2. CEFEPIME [Concomitant]
  3. CASPOFUNGIN [Concomitant]
  4. METRONIDAROLE [Concomitant]
  5. ACYCLOVIR [Concomitant]
  6. TACROLIMUS [Concomitant]
  7. HYDROMORPHONE HCL [Concomitant]
  8. ONDANSETRON [Concomitant]
  9. SCOPOLAMINE [Concomitant]
  10. VANCOMYCIN [Concomitant]

REACTIONS (4)
  - FACE OEDEMA [None]
  - OEDEMA [None]
  - OXYGEN SATURATION DECREASED [None]
  - RASH [None]
